FAERS Safety Report 4918078-5 (Version None)
Quarter: 2006Q1

REPORT INFORMATION
  Report Type: 
  Country: None (occurrence: None)
  Receive Date: 20060221
  Receipt Date: 20051114
  Transmission Date: 20060701
  Serious: Yes (Hospitalization)
  Sender: FDA-Public Use
  Company Number: US-MERCK-0511USA02253

PATIENT
  Age: 71 Year
  Sex: Female
  Weight: 96 kg

DRUGS (1)
  1. VIOXX [Suspect]
     Indication: PAIN IN EXTREMITY
     Route: 048

REACTIONS (4)
  - ASTHENIA [None]
  - CHOLELITHIASIS [None]
  - DIZZINESS [None]
  - MYOCARDIAL INFARCTION [None]
